FAERS Safety Report 20013433 (Version 1)
Quarter: 2021Q4

REPORT INFORMATION
  Report Type: Spontaneous
  Country: PL (occurrence: PL)
  Receive Date: 20211029
  Receipt Date: 20211029
  Transmission Date: 20220303
  Serious: Yes (Death, Life-Threatening, Hospitalization, Other)
  Sender: FDA-Public Use
  Company Number: PL-AMGEN-POLSP2021167413

PATIENT

DRUGS (3)
  1. PEGFILGRASTIM [Suspect]
     Active Substance: PEGFILGRASTIM
     Indication: Prophylaxis
     Dosage: 6 MILLIGRAM
     Route: 058
  2. DOXORUBICIN [Concomitant]
     Active Substance: DOXORUBICIN
     Dosage: 25 MILLIGRAM/SQ. METER, QD (DAYS 1-3)
     Route: 065
  3. IFOSFAMIDE\MESNA [Concomitant]
     Active Substance: IFOSFAMIDE\MESNA
     Dosage: 2.5 GRAM PER SQUARE METRE, QD(DAYS 1-4)
     Route: 065

REACTIONS (8)
  - Death [Fatal]
  - Wound complication [Unknown]
  - Wound dehiscence [Unknown]
  - Pleural infection [Unknown]
  - Sarcoma [Unknown]
  - Metastasis [Unknown]
  - Pathological fracture [Unknown]
  - Pleurisy [Unknown]
